FAERS Safety Report 12231135 (Version 2)
Quarter: 2016Q2

REPORT INFORMATION
  Report Type: Report from Study
  Country: PL (occurrence: PL)
  Receive Date: 20160401
  Receipt Date: 20160412
  Transmission Date: 20160815
  Serious: Yes (Other)
  Sender: FDA-Public Use
  Company Number: PL-ROCHE-1734989

PATIENT

DRUGS (1)
  1. ALTEPLASE [Suspect]
     Active Substance: ALTEPLASE
     Indication: THROMBOLYSIS
     Dosage: INFUSION (10 MG/HOUR) CONTINUED FOR AN ADDITIONAL 3 HOURS UNTIL THE TOTAL DOSE OF 40 MG WAS ADMINIST
     Route: 042

REACTIONS (2)
  - Haematoma [Recovering/Resolving]
  - Compartment syndrome [Recovering/Resolving]
